FAERS Safety Report 24252786 (Version 1)
Quarter: 2024Q3

REPORT INFORMATION
  Report Type: Spontaneous
  Country: US (occurrence: US)
  Receive Date: 20240827
  Receipt Date: 20240827
  Transmission Date: 20241017
  Serious: No
  Sender: BRISTOL MYERS SQUIBB
  Company Number: US-BRISTOL-MYERS SQUIBB COMPANY-2024-124415

PATIENT
  Age: 66 Year
  Sex: Female
  Weight: 68.04 kg

DRUGS (1)
  1. CAMZYOS [Suspect]
     Active Substance: MAVACAMTEN
     Indication: Cardiomyopathy
     Route: 048

REACTIONS (3)
  - Sneezing [Unknown]
  - Rhinorrhoea [Unknown]
  - Insomnia [Unknown]
